FAERS Safety Report 14779046 (Version 5)
Quarter: 2018Q2

REPORT INFORMATION
  Report Type: Spontaneous
  Country: PL (occurrence: PL)
  Receive Date: 20180419
  Receipt Date: 20180627
  Transmission Date: 20180711
  Serious: Yes (Death, Other)
  Sender: FDA-Public Use
  Company Number: PL-PFIZER INC-2018155869

PATIENT
  Age: 66 Year
  Sex: Male

DRUGS (1)
  1. LINCOCIN [Suspect]
     Active Substance: LINCOMYCIN
     Indication: BRONCHITIS
     Dosage: UNK
     Route: 042
     Dates: start: 20180410

REACTIONS (4)
  - Diarrhoea [Fatal]
  - Vomiting [Fatal]
  - Dyspnoea [Fatal]
  - Blood pressure decreased [Unknown]

NARRATIVE: CASE EVENT DATE: 20180410
